FAERS Safety Report 9343838 (Version 1)
Quarter: 2013Q2

REPORT INFORMATION
  Report Type: Spontaneous
  Country: SE (occurrence: SE)
  Receive Date: 20130612
  Receipt Date: 20130612
  Transmission Date: 20140414
  Serious: Yes (Hospitalization)
  Sender: FDA-Public Use
  Company Number: SE-BAYER-2013-010940

PATIENT
  Age: 26 Year
  Sex: Female

DRUGS (3)
  1. YAZ [Suspect]
     Dosage: 0.02MG/3MG
     Route: 048
     Dates: start: 201201, end: 20121206
  2. SERTRALIN [Concomitant]
  3. VITAMINS [Concomitant]

REACTIONS (4)
  - Pulmonary embolism [Unknown]
  - Fatigue [Unknown]
  - Dyspnoea [Unknown]
  - Hyperventilation [Unknown]
